FAERS Safety Report 5441259-1 (Version None)
Quarter: 2007Q3

REPORT INFORMATION
  Report Type: 
  Country: None (occurrence: None)
  Receive Date: 20070901
  Receipt Date: 20070822
  Transmission Date: 20080115
  Serious: Yes (Other)
  Sender: FDA-Public Use
  Company Number: US-PFIZER INC-2007071498

PATIENT
  Sex: Female
  Weight: 74.8 kg

DRUGS (10)
  1. CHANTIX [Suspect]
     Indication: SMOKING CESSATION THERAPY
  2. NOVOLOG [Concomitant]
  3. ACIPHEX [Concomitant]
  4. DOMPERIDONE [Concomitant]
  5. NEURONTIN [Concomitant]
  6. FLONASE [Concomitant]
  7. VYTORIN [Concomitant]
  8. LISINOPRIL [Concomitant]
  9. POLYETHYLENE GLYCOL [Concomitant]
  10. CYMBALTA [Concomitant]

REACTIONS (2)
  - BACK PAIN [None]
  - OESOPHAGEAL PAIN [None]
